FAERS Safety Report 4992841-7 (Version None)
Quarter: 2006Q2

REPORT INFORMATION
  Report Type: 
  Country: None (occurrence: None)
  Receive Date: 20060504
  Receipt Date: 20050411
  Transmission Date: 20061013
  Serious: Yes (Life-Threatening, Hospitalization, Other)
  Sender: FDA-Public Use
  Company Number: JP-MERCK-0504USA02456

PATIENT
  Age: 33 Year
  Sex: Female

DRUGS (5)
  1. CLINORIL [Suspect]
     Indication: SLE ARTHRITIS
     Route: 048
     Dates: start: 20050119, end: 20050205
  2. CYTOTEC [Suspect]
     Indication: SLE ARTHRITIS
     Route: 048
     Dates: start: 20050119, end: 20050205
  3. ACETAMINOPHEN [Suspect]
     Route: 065
  4. NEO-AMUNOLL [Suspect]
     Indication: NASOPHARYNGITIS
     Route: 048
     Dates: start: 20050202, end: 20050205
  5. CALONAL [Suspect]
     Route: 048
     Dates: start: 20050202, end: 20050205

REACTIONS (8)
  - CHOLESTASIS [None]
  - DIARRHOEA [None]
  - HERPES ZOSTER [None]
  - HYDRONEPHROSIS [None]
  - PNEUMOCYSTIS JIROVECI PNEUMONIA [None]
  - PSEUDOMONAL BACTERAEMIA [None]
  - RENAL DISORDER [None]
  - TOXIC EPIDERMAL NECROLYSIS [None]
